FAERS Safety Report 4685504-9 (Version None)
Quarter: 2005Q2

REPORT INFORMATION
  Report Type: 
  Country: None (occurrence: None)
  Receive Date: 20050608
  Receipt Date: 20050503
  Transmission Date: 20051028
  Serious: Yes (Hospitalization)
  Sender: FDA-Public Use
  Company Number: PE-BRISTOL-MYERS SQUIBB COMPANY-12954657

PATIENT
  Age: 33 Year
  Sex: Male

DRUGS (2)
  1. ATAZANAVIR [Suspect]
     Indication: HIV INFECTION
     Route: 048
     Dates: start: 20010101
  2. COMBIVIR [Concomitant]
     Dates: start: 20010101

REACTIONS (4)
  - CATHETER RELATED INFECTION [None]
  - LEPTOSPIROSIS [None]
  - RICKETTSIOSIS [None]
  - STAPHYLOCOCCAL SEPSIS [None]
